FAERS Safety Report 21017781 (Version 2)
Quarter: 2022Q3

REPORT INFORMATION
  Report Type: Spontaneous
  Country: FR (occurrence: None)
  Receive Date: 20220628
  Receipt Date: 20220712
  Transmission Date: 20221026
  Serious: Yes (Hospitalization, Other)
  Sender: FDA-Public Use
  Company Number: 2022A227246

PATIENT
  Age: 54 Year
  Sex: Female

DRUGS (6)
  1. ESOMEPRAZOLE [Suspect]
     Active Substance: ESOMEPRAZOLE
     Indication: Helicobacter gastritis
     Dosage: DAILY
     Route: 048
     Dates: start: 202203, end: 202203
  2. ESOMEPRAZOLE [Suspect]
     Active Substance: ESOMEPRAZOLE
     Indication: Helicobacter gastritis
     Dosage: DAILY
     Route: 048
     Dates: start: 202203, end: 202203
  3. PYLERA [Suspect]
     Active Substance: BISMUTH SUBCITRATE POTASSIUM\METRONIDAZOLE\TETRACYCLINE HYDROCHLORIDE
     Indication: Helicobacter gastritis
     Dosage: DAILY
     Route: 048
     Dates: start: 202203, end: 202203
  4. PYLERA [Suspect]
     Active Substance: BISMUTH SUBCITRATE POTASSIUM\METRONIDAZOLE\TETRACYCLINE HYDROCHLORIDE
     Indication: Helicobacter gastritis
     Dosage: DAILY
     Route: 048
     Dates: start: 202203, end: 202203
  5. MODERNA COVID-19 VACCINE [Suspect]
     Active Substance: ELASOMERAN
     Indication: COVID-19 immunisation
     Dosage: R11.0DF ONCE/SINGLE ADMINISTRATION
     Route: 030
     Dates: start: 202201, end: 202201
  6. CANDESARTAN CILEXETIL [Concomitant]
     Active Substance: CANDESARTAN CILEXETIL
     Indication: Product used for unknown indication
     Dosage: 4.0MG UNKNOWN
     Route: 048

REACTIONS (1)
  - Eosinophilic fasciitis [Recovering/Resolving]

NARRATIVE: CASE EVENT DATE: 20220301
